FAERS Safety Report 5649793-6 (Version None)
Quarter: 2008Q1

REPORT INFORMATION
  Report Type: 
  Country: None (occurrence: None)
  Receive Date: 20080304
  Receipt Date: 20080221
  Transmission Date: 20080703
  Serious: Yes (Other)
  Sender: FDA-Public Use
  Company Number: US-PFIZER INC-2008017733

PATIENT
  Sex: Female
  Weight: 54.5 kg

DRUGS (4)
  1. CHANTIX [Suspect]
     Indication: SMOKING CESSATION THERAPY
  2. XELODA [Concomitant]
  3. XANAX [Concomitant]
  4. LEXAPRO [Concomitant]

REACTIONS (2)
  - DYSGRAPHIA [None]
  - TREMOR [None]
